FAERS Safety Report 6252028-7 (Version None)
Quarter: 2009Q2

REPORT INFORMATION
  Report Type: 
  Country: None (occurrence: None)
  Receive Date: 20090630
  Receipt Date: 20050420
  Transmission Date: 20091009
  Serious: Yes (Death, Hospitalization)
  Sender: FDA-Public Use
  Company Number: US-ROCHE-638690

PATIENT
  Sex: Male

DRUGS (4)
  1. ENFUVIRTIDE [Suspect]
     Route: 065
     Dates: start: 20050103, end: 20050928
  2. EPIVIR [Concomitant]
     Dosage: FREQUENCY: QD
     Dates: start: 20050103, end: 20050928
  3. LEXIVA [Concomitant]
     Dates: start: 20050103, end: 20050928
  4. VIDEX EC [Concomitant]
     Dates: start: 20050103, end: 20050928

REACTIONS (4)
  - ABDOMINAL PAIN [None]
  - ACQUIRED IMMUNODEFICIENCY SYNDROME [None]
  - ASCITES [None]
  - HEPATITIS C [None]
